FAERS Safety Report 9393963 (Version 6)
Quarter: 2014Q1

REPORT INFORMATION
  Report Type: Spontaneous
  Country: JP (occurrence: JP)
  Receive Date: 20130710
  Receipt Date: 20140331
  Transmission Date: 20141002
  Serious: Yes (Hospitalization, Other)
  Sender: FDA-Public Use
  Company Number: JP-GILEAD-2013-0078654

PATIENT
  Age: 69 Year
  Sex: Male
  Weight: 62 kg

DRUGS (5)
  1. HEPSERA [Suspect]
     Indication: CHRONIC HEPATITIS B
     Dosage: 10 MG, QD
     Route: 048
     Dates: start: 20080221, end: 20130216
  2. ZEFIX [Suspect]
     Indication: CHRONIC HEPATITIS B
     Dosage: 100 MG, QD
     Route: 048
     Dates: start: 20041026
  3. ZANTAC [Concomitant]
     Indication: GASTRITIS
     Route: 048
     Dates: start: 199712
  4. MEILAX [Concomitant]
     Indication: INSOMNIA
     Route: 048
     Dates: start: 199712
  5. NEO-MINOPHAGEN C [Concomitant]
     Indication: PRODUCT USED FOR UNKNOWN INDICATION
     Route: 042

REACTIONS (24)
  - Nephrolithiasis [Unknown]
  - Neurogenic bladder [Recovering/Resolving]
  - Urinary tract infection [Unknown]
  - Abscess intestinal [Recovering/Resolving]
  - Fall [Unknown]
  - Intestinal mass [Unknown]
  - Hepatocellular carcinoma [Unknown]
  - Dysphagia [Unknown]
  - Abasia [Not Recovered/Not Resolved]
  - Immobile [Not Recovered/Not Resolved]
  - Bedridden [Not Recovered/Not Resolved]
  - Calculus bladder [Unknown]
  - Pyrexia [Unknown]
  - Gastrointestinal carcinoma [Unknown]
  - Aphagia [Unknown]
  - Renal glycosuria [Recovered/Resolved]
  - Beta 2 microglobulin urine increased [Recovered/Resolved]
  - Appendiceal abscess [Recovered/Resolved]
  - Hypokalaemia [Recovered/Resolved]
  - Fanconi syndrome acquired [Recovered/Resolved]
  - Hypophosphataemia [Recovering/Resolving]
  - Asthenia [Unknown]
  - Muscular weakness [Recovering/Resolving]
  - Renal impairment [Recovered/Resolved]
